FAERS Safety Report 21381401 (Version 1)
Quarter: 2022Q3

REPORT INFORMATION
  Report Type: Report from Study
  Country: MX (occurrence: MX)
  Receive Date: 20220927
  Receipt Date: 20220927
  Transmission Date: 20221027
  Serious: Yes (Death, Hospitalization, Other)
  Sender: FDA-Public Use
  Company Number: MX-UCBSA-2022056778

PATIENT
  Sex: Male
  Weight: 70 kg

DRUGS (6)
  1. LEVETIRACETAM [Suspect]
     Active Substance: LEVETIRACETAM
     Indication: Seizure
     Dosage: 500 MILLIGRAM, 2X/DAY (BID)
     Route: 048
     Dates: start: 202003, end: 2021
  2. LEVETIRACETAM [Suspect]
     Active Substance: LEVETIRACETAM
     Dosage: 750 MILLIGRAM (500MG 1.5 TABLET), 2X/DAY (BID)
     Route: 048
     Dates: start: 2021, end: 2021
  3. LEVETIRACETAM [Suspect]
     Active Substance: LEVETIRACETAM
     Dosage: 500 MILLIGRAM, 2X/DAY (BID)
     Route: 048
     Dates: start: 2021
  4. QUETIAPINE [Concomitant]
     Active Substance: QUETIAPINE
     Indication: Anxiety
     Dosage: UNK
     Dates: start: 202201, end: 202202
  5. VITAMINS NOS [Concomitant]
     Active Substance: VITAMINS
     Indication: Product used for unknown indication
  6. BEDOYECTA [CALCIUM ASCORBATE;CYANOCOBALAMIN;FOLIC ACID;INOSITOL;PYRIDO [Concomitant]
     Indication: Product used for unknown indication

REACTIONS (7)
  - Myocardial infarction [Fatal]
  - Seizure [Unknown]
  - Fall [Recovered/Resolved]
  - Hip fracture [Recovered/Resolved]
  - Anxiety [Recovered/Resolved]
  - Off label use [Unknown]
  - Product dose omission in error [Unknown]

NARRATIVE: CASE EVENT DATE: 20210101
